FAERS Safety Report 13197449 (Version 2)
Quarter: 2017Q1

REPORT INFORMATION
  Report Type: Spontaneous
  Country: US (occurrence: US)
  Receive Date: 20170208
  Receipt Date: 20170303
  Transmission Date: 20170428
  Serious: Yes (Other)
  Sender: FDA-Public Use
  Company Number: US-TAIHO ONCOLOGY INC-EU-2017-00199

PATIENT
  Sex: Male

DRUGS (13)
  1. LONSURF [Suspect]
     Active Substance: TIPIRACIL HYDROCHLORIDE\TRIFLURIDINE
     Indication: COLON CANCER
     Route: 048
     Dates: start: 20161217
  2. LEVOFLOXACIN. [Concomitant]
     Active Substance: LEVOFLOXACIN
     Dosage: NI
  3. OXYCONTIN [Concomitant]
     Active Substance: OXYCODONE HYDROCHLORIDE
     Dosage: NI
  4. ZOFRAN [Concomitant]
     Active Substance: ONDANSETRON HYDROCHLORIDE
     Dosage: NI
  5. PREDNISONE. [Concomitant]
     Active Substance: PREDNISONE
     Dosage: NI
  6. LONSURF [Suspect]
     Active Substance: TIPIRACIL HYDROCHLORIDE\TRIFLURIDINE
     Indication: METASTASES TO LIVER
  7. MIRALAX [Concomitant]
     Active Substance: POLYETHYLENE GLYCOL 3350
     Dosage: NI
  8. LEVOTHYROXINE SODIUM. [Concomitant]
     Active Substance: LEVOTHYROXINE SODIUM
     Dosage: NI
  9. SALBUTAMOL [Concomitant]
     Active Substance: ALBUTEROL
     Dosage: NI
  10. TESTOSTERONE CIPIONATE [Concomitant]
     Active Substance: TESTOSTERONE
     Dosage: NI
  11. LISINOPRIL. [Concomitant]
     Active Substance: LISINOPRIL
     Dosage: NI
  12. KLOR-CON [Concomitant]
     Active Substance: POTASSIUM CHLORIDE
     Dosage: NI
  13. MELATONIN [Concomitant]
     Active Substance: MELATONIN
     Dosage: NI

REACTIONS (3)
  - Neuropathy peripheral [Unknown]
  - Abdominal pain upper [Unknown]
  - Withdrawal syndrome [Unknown]
